FAERS Safety Report 19836179 (Version 1)
Quarter: 2021Q3

REPORT INFORMATION
  Report Type: Spontaneous
  Country: US (occurrence: US)
  Receive Date: 20210915
  Receipt Date: 20210915
  Transmission Date: 20211014
  Serious: No
  Sender: FDA-Public Use
  Company Number: US-BIOHAVEN PHARMACEUTICALS-2021BHV01099

PATIENT
  Age: 42 Year
  Sex: Female
  Weight: 68.03 kg

DRUGS (8)
  1. GABAPENTIN. [Concomitant]
     Active Substance: GABAPENTIN
  2. ARMOUR THYROID [Concomitant]
     Active Substance: THYROID, PORCINE
  3. NURTEC ODT [Suspect]
     Active Substance: RIMEGEPANT SULFATE
     Indication: MIGRAINE PROPHYLAXIS
     Dosage: 75 MG, EVERY 48 HOURS, AT NIGHT
     Route: 060
     Dates: start: 202107, end: 202107
  4. MAGNESIUM [Concomitant]
     Active Substance: MAGNESIUM
  5. ZONISAMIDE. [Concomitant]
     Active Substance: ZONISAMIDE
  6. COENZYME Q?10 [Concomitant]
  7. UNSPECIFIED NSAIDS [Concomitant]
     Active Substance: UNSPECIFIED INGREDIENT
  8. NAMENDA [Concomitant]
     Active Substance: MEMANTINE HYDROCHLORIDE

REACTIONS (1)
  - Arthralgia [Recovering/Resolving]

NARRATIVE: CASE EVENT DATE: 202107
